FAERS Safety Report 7568451-4 (Version None)
Quarter: 2011Q2

REPORT INFORMATION
  Report Type: 
  Country: None (occurrence: None)
  Receive Date: 20110623
  Receipt Date: 20110621
  Transmission Date: 20111010
  Serious: Yes (Hospitalization)
  Sender: FDA-Public Use
  Company Number: US-ABBOTT-11P-163-0734246-00

PATIENT
  Sex: Female
  Weight: 49.94 kg

DRUGS (5)
  1. NIASPAN [Suspect]
     Indication: BLOOD CHOLESTEROL INCREASED
     Dates: start: 20090101, end: 20110201
  2. NIASPAN [Suspect]
     Dates: start: 20110401
  3. SIMVASTATIN [Concomitant]
     Indication: BLOOD CHOLESTEROL INCREASED
  4. CREON [Concomitant]
     Indication: DYSPEPSIA
  5. ATENOLOL [Concomitant]
     Indication: HYPERTENSION

REACTIONS (3)
  - SKIN BURNING SENSATION [None]
  - ERYTHEMA [None]
  - PANCREATIC CARCINOMA [None]
